FAERS Safety Report 6386241-5 (Version None)
Quarter: 2009Q4

REPORT INFORMATION
  Report Type: 
  Country: None (occurrence: None)
  Receive Date: 20091002
  Receipt Date: 20090921
  Transmission Date: 20100525
  Serious: Yes (Other)
  Sender: FDA-Public Use
  Company Number: RS-ELI_LILLY_AND_COMPANY-RS200910000051

PATIENT

DRUGS (3)
  1. GEMZAR [Suspect]
     Indication: HODGKIN'S DISEASE REFRACTORY
     Dosage: 1250 MG/M2, DAY 1, 8 AND 15 EVERY THREE WEEKS
     Route: 065
  2. GEMZAR [Suspect]
     Dosage: UNK, UNKNOWN
     Route: 065
  3. DEXAMETHASONE 4MG TAB [Concomitant]
     Indication: HODGKIN'S DISEASE REFRACTORY
     Dosage: UNK, UNKNOWN
     Route: 065

REACTIONS (1)
  - HAEMATOTOXICITY [None]
